FAERS Safety Report 23647933 (Version 1)
Quarter: 2024Q1

REPORT INFORMATION
  Report Type: Spontaneous
  Country: KR (occurrence: None)
  Receive Date: 20240319
  Receipt Date: 20240319
  Transmission Date: 20240409
  Serious: Yes (Death)
  Sender: FDA-Public Use
  Company Number: 2024A065336

PATIENT
  Age: 82 Year
  Sex: Female

DRUGS (2)
  1. TAGRISSO [Suspect]
     Active Substance: OSIMERTINIB
     Dosage: 14 TABLETS
     Route: 048
     Dates: start: 20230220
  2. TAGRISSO [Suspect]
     Active Substance: OSIMERTINIB
     Dosage: 28 TABLETS
     Route: 048
     Dates: start: 20230306

REACTIONS (1)
  - Lung neoplasm malignant [Fatal]

NARRATIVE: CASE EVENT DATE: 20230502
